FAERS Safety Report 19462197 (Version 2)
Quarter: 2021Q2

REPORT INFORMATION
  Report Type: Spontaneous
  Country: US (occurrence: US)
  Receive Date: 20210625
  Receipt Date: 20210628
  Transmission Date: 20210717
  Serious: Yes (Other)
  Sender: FDA-Public Use
  Company Number: US-COOPERSURGICAL, INC.-US-2021CPS001722

PATIENT
  Sex: Female

DRUGS (1)
  1. PARAGARD T 380A [Suspect]
     Active Substance: COPPER
     Indication: CONTRACEPTION
     Dosage: UNK
     Route: 015
     Dates: start: 20110829, end: 20190626

REACTIONS (13)
  - Discomfort [Unknown]
  - Disability [Unknown]
  - Device breakage [Recovered/Resolved]
  - Emotional distress [Unknown]
  - Injury associated with device [Unknown]
  - Pain [Unknown]
  - Anxiety [Unknown]
  - Anhedonia [Unknown]
  - Deformity [Unknown]
  - Complication of device removal [Recovered/Resolved]
  - Foreign body in reproductive tract [Recovered/Resolved]
  - Reproductive complication associated with device [Unknown]
  - Economic problem [Unknown]

NARRATIVE: CASE EVENT DATE: 20190529
